FAERS Safety Report 6666082-1 (Version None)
Quarter: 2010Q2

REPORT INFORMATION
  Report Type: 
  Country: None (occurrence: None)
  Receive Date: 20100402
  Receipt Date: 20100317
  Transmission Date: 20101027
  Serious: Yes (Hospitalization)
  Sender: FDA-Public Use
  Company Number: FR-PFIZER INC-2010032863

PATIENT
  Age: 58 Year
  Sex: Male

DRUGS (13)
  1. XANAX [Suspect]
     Dosage: 1 DF, 2X/DAY
     Route: 048
     Dates: start: 20100114, end: 20100118
  2. NEURONTIN [Suspect]
     Indication: ANALGESIC THERAPY
     Dosage: 300 MG, 1X/DAY
     Route: 048
     Dates: start: 20100112, end: 20100120
  3. AMITRIPTYLINE HCL [Suspect]
     Indication: ANALGESIC THERAPY
     Dosage: 5 GTT, 1X/DAY
     Route: 048
     Dates: start: 20100112
  4. ATARAX [Suspect]
     Dosage: 1 DF, 1X/DAY
     Route: 048
  5. TEMESTA [Suspect]
     Dosage: 1 DF, 3X/DAY
     Route: 048
  6. OXYCONTIN [Suspect]
     Dosage: 2 DF, 1X/DAY
     Route: 048
     Dates: start: 20100114, end: 20100122
  7. OXYCODONE HCL [Suspect]
     Dosage: 1 DF, 1X/DAY
     Route: 048
     Dates: start: 20100114, end: 20100120
  8. EZETROL [Concomitant]
     Dosage: 10 MG, 1X/DAY
  9. DURAGESIC-100 [Concomitant]
     Dosage: 75 UG, 3X/DAY
  10. ACTISKENAN [Concomitant]
     Dosage: 10 MG, AS NEEDED
  11. DOLIPRANE [Concomitant]
     Dosage: 1000 G, 4X/DAY
  12. TAXOTERE [Concomitant]
     Indication: ADENOCARCINOMA
     Dosage: 75 MG/M2, 1X/DAY
     Dates: start: 20100113
  13. CISPLATIN [Concomitant]
     Dosage: 75 MG/M2, 1X/DAY, FROM D1 TO D21
     Dates: start: 20100113

REACTIONS (2)
  - CONFUSIONAL STATE [None]
  - MICROCYTIC ANAEMIA [None]
